FAERS Safety Report 22607264 (Version 1)
Quarter: 2023Q2

REPORT INFORMATION
  Report Type: Report from Study
  Country: CO (occurrence: CO)
  Receive Date: 20230615
  Receipt Date: 20230615
  Transmission Date: 20230721
  Serious: Yes (Hospitalization)
  Sender: FDA-Public Use
  Company Number: CO-BIOGEN-2023BI01210780

PATIENT
  Age: 45 Year
  Sex: Male
  Weight: 88 kg

DRUGS (1)
  1. TYSABRI [Suspect]
     Active Substance: NATALIZUMAB
     Indication: Multiple sclerosis
     Route: 050
     Dates: start: 20191230

REACTIONS (1)
  - Thrombotic stroke [Recovered/Resolved with Sequelae]

NARRATIVE: CASE EVENT DATE: 20230108
